FAERS Safety Report 6950964-7 (Version None)
Quarter: 2010Q3

REPORT INFORMATION
  Report Type: 
  Country: None (occurrence: None)
  Receive Date: 20100828
  Receipt Date: 20100304
  Transmission Date: 20110219
  Serious: No
  Sender: FDA-Public Use
  Company Number: US-ABBOTT-10P-163-0630665-00

PATIENT
  Sex: Male
  Weight: 71.278 kg

DRUGS (7)
  1. NIASPAN [Suspect]
     Indication: HIGH DENSITY LIPOPROTEIN DECREASED
     Dates: start: 20100303
  2. NIASPAN [Suspect]
     Indication: LOW DENSITY LIPOPROTEIN INCREASED
  3. SINEQUAN [Concomitant]
     Indication: DEPRESSION
  4. CELEXA [Concomitant]
     Indication: DEPRESSION
  5. LISINOPRIL [Concomitant]
     Indication: HYPERTENSION
     Dosage: 10/12.5 MG DAILY
  6. INDERAL [Concomitant]
     Indication: PALPITATIONS
  7. AMBIEN [Concomitant]
     Indication: INSOMNIA

REACTIONS (1)
  - INSOMNIA [None]
